FAERS Safety Report 23182357 (Version 1)
Quarter: 2023Q4

REPORT INFORMATION
  Report Type: Spontaneous
  Country: CA (occurrence: None)
  Receive Date: 20231114
  Receipt Date: 20231114
  Transmission Date: 20240109
  Serious: Yes (Other)
  Sender: FDA-Public Use
  Company Number: CA-ROCHE-3454186

PATIENT
  Sex: Female

DRUGS (1)
  1. ALECTINIB [Suspect]
     Active Substance: ALECTINIB
     Indication: Non-small cell lung cancer metastatic
     Route: 065

REACTIONS (3)
  - Lymphadenopathy [Unknown]
  - Lung disorder [Unknown]
  - Gene mutation [Unknown]
